FAERS Safety Report 9220429 (Version 1)
Quarter: 2013Q2

REPORT INFORMATION
  Report Type: Report from Study
  Country: IT (occurrence: IT)
  Receive Date: 20130409
  Receipt Date: 20130409
  Transmission Date: 20140414
  Serious: Yes (Other)
  Sender: FDA-Public Use
  Company Number: IT-BAXTER-2013BAX013249

PATIENT
  Sex: 0

DRUGS (5)
  1. ENDOXAN BAXTER [Suspect]
     Indication: DIFFUSE LARGE B-CELL LYMPHOMA
     Dosage: DAYS 1- 5
     Route: 065
  2. RITUXIMAB [Suspect]
     Indication: DIFFUSE LARGE B-CELL LYMPHOMA
     Dosage: DAYS 1- 5
     Route: 065
  3. VINCRISTINE [Suspect]
     Indication: DIFFUSE LARGE B-CELL LYMPHOMA
     Dosage: DAYS 1- 5
     Route: 065
  4. MYOCET [Suspect]
     Indication: DIFFUSE LARGE B-CELL LYMPHOMA
     Dosage: DAYS 1- 5
     Route: 065
  5. PREDNISONE [Suspect]
     Indication: DIFFUSE LARGE B-CELL LYMPHOMA
     Dosage: DAYS 1- 5
     Route: 065

REACTIONS (1)
  - Ejection fraction decreased [Unknown]
